FAERS Safety Report 13418775 (Version 1)
Quarter: 2017Q2

REPORT INFORMATION
  Report Type: Spontaneous
  Country: US (occurrence: US)
  Receive Date: 20170406
  Receipt Date: 20170406
  Transmission Date: 20170830
  Serious: No
  Sender: FDA-Public Use
  Company Number: US-BIOGEN-2017BI00381134

PATIENT
  Sex: Female

DRUGS (1)
  1. AVONEX [Suspect]
     Active Substance: INTERFERON BETA-1A
     Indication: MULTIPLE SCLEROSIS
     Route: 030
     Dates: start: 201612, end: 201703

REACTIONS (5)
  - Urinary tract infection [Unknown]
  - Malaise [Unknown]
  - White blood cell count decreased [Unknown]
  - Insomnia [Unknown]
  - Asthenia [Unknown]
